FAERS Safety Report 25265146 (Version 2)
Quarter: 2025Q2

REPORT INFORMATION
  Report Type: Spontaneous
  Country: US (occurrence: US)
  Receive Date: 20250502
  Receipt Date: 20250523
  Transmission Date: 20250716
  Serious: No
  Sender: VERTEX
  Company Number: US-VERTEX PHARMACEUTICALS-2025-006573

PATIENT
  Sex: Male

DRUGS (4)
  1. JOURNAVX [Suspect]
     Active Substance: SUZETRIGINE
     Indication: Spinal pain
     Dosage: LOADING DOSE (2X50MG) 100 MG, SINGLE
     Route: 048
     Dates: start: 20250410
  2. JOURNAVX [Suspect]
     Active Substance: SUZETRIGINE
     Route: 048
     Dates: start: 202504, end: 202505
  3. OXYCODONE [Concomitant]
     Active Substance: OXYCODONE
     Indication: Spinal pain
  4. PERCOCET [Concomitant]
     Active Substance: ACETAMINOPHEN\OXYCODONE HYDROCHLORIDE

REACTIONS (4)
  - Lethargy [Unknown]
  - Brain fog [Unknown]
  - Nausea [Recovered/Resolved]
  - Off label use [Unknown]

NARRATIVE: CASE EVENT DATE: 20250101
